FAERS Safety Report 23321180 (Version 5)
Quarter: 2024Q3

REPORT INFORMATION
  Report Type: Spontaneous
  Country: US (occurrence: US)
  Receive Date: 20231220
  Receipt Date: 20240711
  Transmission Date: 20241016
  Serious: No
  Sender: SANOFI AVENTIS
  Company Number: US-SA-SAC20231214001015

PATIENT
  Age: 38 Year
  Sex: Female

DRUGS (2)
  1. DUPIXENT [Suspect]
     Active Substance: DUPILUMAB
     Indication: Dermatitis atopic
     Dosage: 600 MG, 1X
     Route: 058
     Dates: start: 202210, end: 202210
  2. DUPIXENT [Suspect]
     Active Substance: DUPILUMAB
     Dosage: 300 MG, QOW
     Route: 058
     Dates: start: 2022

REACTIONS (16)
  - Psoriasis [Unknown]
  - Pruritus [Recovered/Resolved]
  - Epicondylitis [Recovered/Resolved]
  - Joint swelling [Unknown]
  - Feeling abnormal [Unknown]
  - Sinusitis [Unknown]
  - Pain of skin [Unknown]
  - Vision blurred [Not Recovered/Not Resolved]
  - Condition aggravated [Not Recovered/Not Resolved]
  - Dry eye [Recovering/Resolving]
  - Hypersensitivity [Unknown]
  - Eye swelling [Unknown]
  - Swelling face [Unknown]
  - Erythema [Unknown]
  - Skin erosion [Unknown]
  - Arthralgia [Recovered/Resolved]

NARRATIVE: CASE EVENT DATE: 20230101
